FAERS Safety Report 13312091 (Version 1)
Quarter: 2017Q1

REPORT INFORMATION
  Report Type: Spontaneous
  Country: US (occurrence: US)
  Receive Date: 20170309
  Receipt Date: 20170309
  Transmission Date: 20170428
  Serious: Yes (Hospitalization)
  Sender: FDA-Public Use
  Company Number: None

PATIENT
  Age: 46 Year
  Sex: Male
  Weight: 126.25 kg

DRUGS (22)
  1. DEPAKOTE [Concomitant]
     Active Substance: DIVALPROEX SODIUM
  2. SPIRONOLACTONE. [Concomitant]
     Active Substance: SPIRONOLACTONE
  3. FUROSEMIDE. [Concomitant]
     Active Substance: FUROSEMIDE
  4. OMEPRAZOLE. [Concomitant]
     Active Substance: OMEPRAZOLE
  5. DOCUSATE [Concomitant]
     Active Substance: DOCUSATE
  6. MIRALAX [Concomitant]
     Active Substance: POLYETHYLENE GLYCOL 3350
  7. DETEMIR [Concomitant]
  8. CLONIDONE [Concomitant]
  9. OXYCODONE [Concomitant]
     Active Substance: OXYCODONE
  10. HUMALOG [Concomitant]
     Active Substance: INSULIN LISPRO
  11. TRIAMCINOLONE [Concomitant]
     Active Substance: TRIAMCINOLONE
  12. CITALOPRAM [Concomitant]
     Active Substance: CITALOPRAM HYDROBROMIDE
  13. DACLATASVIR 60 MG BRISTOL MYERS SQUIBB [Suspect]
     Active Substance: DACLATASVIR
     Indication: HEPATITIS C
     Route: 048
     Dates: start: 20160322, end: 20160901
  14. LORAZEPAM. [Concomitant]
     Active Substance: LORAZEPAM
  15. BISACODYL. [Concomitant]
     Active Substance: BISACODYL
  16. ZOFRAN [Concomitant]
     Active Substance: ONDANSETRON HYDROCHLORIDE
  17. LOVENOX [Concomitant]
     Active Substance: ENOXAPARIN SODIUM
  18. LACTULOSE. [Concomitant]
     Active Substance: LACTULOSE
  19. SOFOSBVIR 400 MG GILEAD [Suspect]
     Active Substance: SOFOSBUVIR
     Indication: HEPATITIS C
     Route: 048
     Dates: start: 20160322, end: 20160901
  20. KEPPRA [Concomitant]
     Active Substance: LEVETIRACETAM
  21. NICOTINE. [Concomitant]
     Active Substance: NICOTINE
  22. TRAZODONE [Concomitant]
     Active Substance: TRAZODONE HYDROCHLORIDE

REACTIONS (3)
  - Seizure [None]
  - Fibula fracture [None]
  - Fall [None]

NARRATIVE: CASE EVENT DATE: 20160817
